FAERS Safety Report 8347882-9 (Version None)
Quarter: 2012Q2

REPORT INFORMATION
  Report Type: 
  Country: None (occurrence: None)
  Receive Date: 20120509
  Receipt Date: 20120426
  Transmission Date: 20120825
  Serious: Yes (Hospitalization, Other)
  Sender: FDA-Public Use
  Company Number: US-ELI_LILLY_AND_COMPANY-US201112003416

PATIENT
  Sex: Female
  Weight: 54 kg

DRUGS (11)
  1. MULTI-VITAMIN [Concomitant]
  2. HYDROCODONE BITARTRATE AND ACETAMINOPHEN [Concomitant]
     Indication: OSTEOARTHRITIS
     Dosage: UNK, BID
  3. ZOCOR [Concomitant]
  4. FORTEO [Suspect]
     Indication: OSTEOPOROSIS
     Dosage: 20 UG, QD
     Route: 058
     Dates: start: 20110901, end: 20120102
  5. VITAMIN D [Concomitant]
  6. CALCIUM WITH VITAMIN D [Concomitant]
     Dosage: 1500 MG, UNKNOWN
  7. FORTEO [Suspect]
     Dosage: 20 UG, QD
     Route: 058
     Dates: start: 20120112
  8. FLEXERIL [Concomitant]
     Dosage: 10 MG, EVERY HOUR
  9. FOSAMAX [Concomitant]
     Dosage: 70 MG, WEEKLY (1/W)
  10. VITAMIN D [Concomitant]
     Dosage: 1200 IU, QD
  11. VITAMIN B COMPLEX CAP [Concomitant]

REACTIONS (5)
  - ABDOMINAL WALL ABSCESS [None]
  - HOSPITALISATION [None]
  - SMALL INTESTINAL OBSTRUCTION [None]
  - CONSTIPATION [None]
  - MALAISE [None]
